FAERS Safety Report 9150136 (Version 1)
Quarter: 2013Q1

REPORT INFORMATION
  Report Type: Spontaneous
  Country: US (occurrence: None)
  Receive Date: 20130131
  Receipt Date: 20130131
  Transmission Date: 20140127
  Serious: Yes (Other)
  Sender: FDA-Public Use
  Company Number: B0863349A

PATIENT
  Sex: 0

DRUGS (2)
  1. MARAVIROC [Suspect]
     Indication: HIV INFECTION
     Route: 048
  2. ABACAVIR SULFATE AND LAMIVUDINE [Concomitant]

REACTIONS (1)
  - Cognitive disorder [None]
